FAERS Safety Report 21701664 (Version 1)
Quarter: 2022Q4

REPORT INFORMATION
  Report Type: Spontaneous
  Country: DE (occurrence: DE)
  Receive Date: 20221208
  Receipt Date: 20221208
  Transmission Date: 20230112
  Serious: Yes (Hospitalization, Other)
  Sender: FDA-Public Use
  Company Number: DE-TEVA-2022-DE-2833135

PATIENT
  Age: 73 Year
  Sex: Female

DRUGS (2)
  1. METOCLOPRAMIDE [Suspect]
     Active Substance: METOCLOPRAMIDE
     Indication: Gastritis
     Route: 065
  2. DONEPEZIL [Suspect]
     Active Substance: DONEPEZIL
     Indication: Dystonia
     Route: 065

REACTIONS (6)
  - Dystonia [Recovered/Resolved]
  - Depression [Recovered/Resolved]
  - Cognitive disorder [Recovered/Resolved]
  - Affective disorder [Recovered/Resolved]
  - Quality of life decreased [Recovered/Resolved]
  - Therapy non-responder [Unknown]
